FAERS Safety Report 7050614-8 (Version None)
Quarter: 2010Q4

REPORT INFORMATION
  Report Type: 
  Country: None (occurrence: None)
  Receive Date: 20101018
  Receipt Date: 20101011
  Transmission Date: 20110411
  Serious: Yes (Hospitalization)
  Sender: FDA-Public Use
  Company Number: IT-ABBOTT-10P-083-0677243-00

PATIENT
  Sex: Male

DRUGS (2)
  1. KLACID [Suspect]
     Indication: OROPHARYNGEAL PAIN
     Route: 048
     Dates: start: 20101004, end: 20101005
  2. VELAMOX [Suspect]
     Indication: OROPHARYNGEAL PAIN
     Route: 048
     Dates: start: 20101006, end: 20101006

REACTIONS (2)
  - PRURITUS [None]
  - URTICARIA [None]
